FAERS Safety Report 14396465 (Version 1)
Quarter: 2018Q1

REPORT INFORMATION
  Report Type: Spontaneous
  Country: US (occurrence: US)
  Receive Date: 20180116
  Receipt Date: 20180116
  Transmission Date: 20180509
  Serious: No
  Sender: FDA-Public Use
  Company Number: US-ALLERGAN-1726876US

PATIENT

DRUGS (2)
  1. BOTOX [Suspect]
     Active Substance: ONABOTULINUMTOXINA
     Indication: NEUROGENIC BLADDER
     Dosage: 200 UNITS, SINGLE
     Route: 043
     Dates: start: 20170616, end: 20170616
  2. MACRODANTIN [Concomitant]
     Active Substance: NITROFURANTOIN

REACTIONS (3)
  - Abdominal discomfort [Recovered/Resolved]
  - Limb discomfort [Recovered/Resolved]
  - Influenza like illness [Recovered/Resolved]
